FAERS Safety Report 10191657 (Version 3)
Quarter: 2014Q2

REPORT INFORMATION
  Report Type: Spontaneous
  Country: GB (occurrence: GB)
  Receive Date: 20140523
  Receipt Date: 20140613
  Transmission Date: 20141212
  Serious: Yes (Life-Threatening, Other)
  Sender: FDA-Public Use
  Company Number: GB-PFIZER INC-2014135663

PATIENT
  Age: 30 Year
  Sex: Female
  Weight: 120 kg

DRUGS (3)
  1. VENLAFAXINE HCL [Suspect]
     Indication: DEPRESSION
     Dosage: 225 MG, 1X/DAY
     Route: 048
  2. ARIPIPRAZOLE [Concomitant]
     Indication: SCHIZOPHRENIA
     Dosage: 20 MG, 1X/DAY
     Route: 048
  3. DEPIXOL DEPOT [Concomitant]
     Dosage: 250 MG, 2 WEEKLY
     Route: 030

REACTIONS (4)
  - Suicidal ideation [Recovered/Resolved]
  - Depression [Recovered/Resolved]
  - Psychotic disorder [Recovered/Resolved]
  - Drug level below therapeutic [Recovered/Resolved]
